FAERS Safety Report 8737862 (Version 6)
Quarter: 2013Q3

REPORT INFORMATION
  Report Type: Report from Study
  Country: JP (occurrence: JP)
  Receive Date: 20120823
  Receipt Date: 20130722
  Transmission Date: 20140515
  Serious: Yes (Hospitalization)
  Sender: FDA-Public Use
  Company Number: JP-009507513-1208JPN003971

PATIENT
  Age: 64 Year
  Sex: Female
  Weight: 42 kg

DRUGS (16)
  1. PEGINTRON [Suspect]
     Indication: CHRONIC HEPATITIS C
     Dosage: 1.5 MICROGRAM PER KILOGRAM, QW
     Route: 058
     Dates: start: 20120517, end: 20120802
  2. PEGINTRON [Suspect]
     Dosage: 1.5 MICROGRAM PER KILOGRAM, QW
     Route: 058
     Dates: start: 20120809, end: 20120920
  3. PEGINTRON [Suspect]
     Dosage: 0.75 MICROGRAM PER KILOGRAM, QW
     Route: 058
     Dates: start: 20120927, end: 20121025
  4. REBETOL [Suspect]
     Indication: CHRONIC HEPATITIS C
     Dosage: 600 MG, QD
     Route: 048
     Dates: start: 20120517, end: 20120613
  5. REBETOL [Suspect]
     Dosage: 400 MG, QD
     Route: 048
     Dates: start: 20120614, end: 20120628
  6. REBETOL [Suspect]
     Dosage: 400 MG, QD
     Route: 048
     Dates: end: 20120802
  7. TELAVIC [Suspect]
     Indication: CHRONIC HEPATITIS C
     Dosage: 2250 MG, QD
     Route: 048
     Dates: start: 20120517, end: 20120525
  8. TELAVIC [Suspect]
     Dosage: 2250 MG, QD
     Route: 048
  9. TELAVIC [Suspect]
     Dosage: 1500 MG, QD
     Route: 048
     Dates: start: 20120718, end: 20120726
  10. TELAVIC [Suspect]
     Dosage: 2250 MG, QD
     Route: 048
     Dates: end: 20120727
  11. ACINON [Concomitant]
     Indication: PROPHYLAXIS
     Dosage: 150 MG, QD; FORMULATION POR
     Route: 048
     Dates: start: 20120517
  12. GASMOTIN [Concomitant]
     Indication: PROPHYLAXIS
     Dosage: 15 MG, QD; FORMULATION POR
     Route: 048
     Dates: start: 20120517
  13. NAUZELIN [Concomitant]
     Indication: PROPHYLAXIS
     Dosage: 30 MG, QD; FORMULATION POR
     Route: 048
     Dates: start: 20120517
  14. MAINTATE [Concomitant]
     Indication: PROPHYLAXIS
     Dosage: 5 MG, QD
     Route: 048
     Dates: start: 20120720
  15. GLACTIV [Concomitant]
     Dosage: 50 MG, QD FORMULATION: POR
     Route: 048
     Dates: start: 20120823
  16. SEIBULE [Concomitant]
     Dosage: 150 MG, QD FORMULATION: POR
     Dates: start: 20120823

REACTIONS (7)
  - Hyperglycaemia [Not Recovered/Not Resolved]
  - Drug eruption [Not Recovered/Not Resolved]
  - Haemoglobin decreased [Not Recovered/Not Resolved]
  - Rash [Recovering/Resolving]
  - Diabetes mellitus [Recovered/Resolved]
  - Decreased appetite [Not Recovered/Not Resolved]
  - Malaise [Not Recovered/Not Resolved]
